FAERS Safety Report 20779599 (Version 1)
Quarter: 2022Q2

REPORT INFORMATION
  Report Type: Spontaneous
  Country: US (occurrence: US)
  Receive Date: 20220503
  Receipt Date: 20220503
  Transmission Date: 20220720
  Serious: No
  Sender: FDA-Public Use
  Company Number: US-PFIZER INC-202200343256

PATIENT
  Age: 46 Year
  Sex: Female
  Weight: 104.33 kg

DRUGS (1)
  1. CHANTIX [Suspect]
     Active Substance: VARENICLINE TARTRATE
     Indication: Smoking cessation therapy
     Dosage: 0.5 MG, 3X/DAY

REACTIONS (5)
  - Amnesia [Unknown]
  - Confusional state [Unknown]
  - Illness [Unknown]
  - Recalled product administered [Unknown]
  - Off label use [Unknown]
